FAERS Safety Report 18092995 (Version 1)
Quarter: 2020Q3

REPORT INFORMATION
  Report Type: Report from Study
  Country: KR (occurrence: KR)
  Receive Date: 20200730
  Receipt Date: 20200730
  Transmission Date: 20201103
  Serious: Yes (Hospitalization)
  Sender: FDA-Public Use
  Company Number: KR-TAKEDA-2019TUS049337

PATIENT
  Age: 80 Year
  Sex: Female

DRUGS (6)
  1. VORTIOXETINE. [Suspect]
     Active Substance: VORTIOXETINE
     Dosage: 10 MILLIGRAM, QD
     Route: 048
     Dates: start: 20190115
  2. RENEXIN [Concomitant]
     Indication: VASCULAR DEMENTIA
     Dosage: UNK
     Route: 048
     Dates: start: 20181016, end: 20181217
  3. DONEPEZIL. [Concomitant]
     Active Substance: DONEPEZIL
     Indication: COGNITIVE DISORDER
     Dosage: 5 MILLIGRAM, QD
     Route: 048
     Dates: start: 20181016
  4. VORTIOXETINE. [Suspect]
     Active Substance: VORTIOXETINE
     Dosage: 10 MILLIGRAM, QD
     Route: 048
     Dates: start: 20181106, end: 20181203
  5. VORTIOXETINE. [Suspect]
     Active Substance: VORTIOXETINE
     Indication: MAJOR DEPRESSION
     Dosage: 5 MILLIGRAM, QD
     Route: 048
     Dates: start: 20181016, end: 20181105
  6. VORTIOXETINE. [Suspect]
     Active Substance: VORTIOXETINE
     Dosage: 15 MILLIGRAM, QD
     Route: 048
     Dates: start: 20181204, end: 20190114

REACTIONS (1)
  - Cholecystitis acute [Recovered/Resolved]

NARRATIVE: CASE EVENT DATE: 20190219
